FAERS Safety Report 5064251-8 (Version None)
Quarter: 2006Q3

REPORT INFORMATION
  Report Type: 
  Country: None (occurrence: None)
  Receive Date: 20060726
  Receipt Date: 20060726
  Transmission Date: 20061208
  Serious: Yes (Other)
  Sender: FDA-Public Use
  Company Number: None

PATIENT
  Age: 51 Year
  Sex: Male

DRUGS (1)
  1. VARDENAFIL [Suspect]
     Indication: ERECTILE DYSFUNCTION

REACTIONS (2)
  - DRUG EFFECT DECREASED [None]
  - HEADACHE [None]
